FAERS Safety Report 10916508 (Version 3)
Quarter: 2015Q2

REPORT INFORMATION
  Report Type: Report from Study
  Country: JP (occurrence: JP)
  Receive Date: 20150316
  Receipt Date: 20150505
  Transmission Date: 20150821
  Serious: Yes (Death, Hospitalization)
  Sender: FDA-Public Use
  Company Number: JP-ACTELION-A-CH2015-114186

PATIENT
  Age: 67 Year
  Sex: Female

DRUGS (22)
  1. VELETRI [Suspect]
     Active Substance: EPOPROSTENOL
     Dosage: 33 NG/KG, PER MIN
     Route: 042
     Dates: start: 20140117, end: 20140216
  2. MAGNESIUM OXIDE. [Concomitant]
     Active Substance: MAGNESIUM OXIDE
  3. SENNOSIDE [Concomitant]
     Active Substance: SENNOSIDES
  4. OXYGEN. [Concomitant]
     Active Substance: OXYGEN
  5. TORASEMIDE [Concomitant]
     Active Substance: TORSEMIDE
  6. AZOSEMIDE [Concomitant]
     Active Substance: AZOSEMIDE
  7. BERAPROST [Concomitant]
     Active Substance: BERAPROST
  8. VELETRI [Suspect]
     Active Substance: EPOPROSTENOL
     Dosage: 33 NG/KG, PER MIN
     Route: 042
     Dates: start: 20140317, end: 201404
  9. VELETRI [Suspect]
     Active Substance: EPOPROSTENOL
     Dosage: 43 NG/KG, PER MIN
     Route: 042
     Dates: start: 201404, end: 20140416
  10. VELETRI [Suspect]
     Active Substance: EPOPROSTENOL
     Dosage: 31 NG/KG, PER MIN
     Route: 042
     Dates: start: 20140417, end: 20140513
  11. VELETRI [Suspect]
     Active Substance: EPOPROSTENOL
     Indication: PULMONARY ARTERIAL HYPERTENSION
     Dosage: 38 NG/KG, PER MIN
     Route: 042
     Dates: start: 20140217, end: 20140223
  12. VELETRI [Suspect]
     Active Substance: EPOPROSTENOL
     Dosage: 40 NG/KG, PER MIN
     Route: 042
     Dates: start: 20140224, end: 20140316
  13. DIGOXIN. [Concomitant]
     Active Substance: DIGOXIN
  14. LANSOPRAZOLE. [Concomitant]
     Active Substance: LANSOPRAZOLE
  15. MOSAPRIDE [Concomitant]
     Active Substance: MOSAPRIDE
  16. RAMELTEON [Concomitant]
     Active Substance: RAMELTEON
  17. VELETRI [Suspect]
     Active Substance: EPOPROSTENOL
     Dosage: 1 NG/KG, PER MIN
     Route: 042
     Dates: start: 20131217, end: 20140116
  18. ENALAPRIL [Concomitant]
     Active Substance: ENALAPRIL
  19. VELETRI [Suspect]
     Active Substance: EPOPROSTENOL
     Dosage: 37 NG/KG, PER MIN
     Route: 042
     Dates: start: 20140513, end: 20140514
  20. ACETAZOLAMIDE. [Concomitant]
     Active Substance: ACETAZOLAMIDE
  21. DABIGATRAN ETEXILATE MESILATE [Concomitant]
  22. TRACLEER [Concomitant]
     Active Substance: BOSENTAN\BOSENTAN MONOHYDRATE
     Indication: PULMONARY ARTERIAL HYPERTENSION

REACTIONS (11)
  - Respiratory arrest [Fatal]
  - Cardiac failure congestive [Fatal]
  - Anaemia [Not Recovered/Not Resolved]
  - Cardiac arrest [Fatal]
  - Pulmonary arterial hypertension [Fatal]
  - Haemoglobin decreased [Not Recovered/Not Resolved]
  - Disease progression [Fatal]
  - Transfusion [Unknown]
  - Loss of consciousness [Fatal]
  - Dyspnoea [Fatal]
  - Pleural effusion [Fatal]

NARRATIVE: CASE EVENT DATE: 20140123
